FAERS Safety Report 10557362 (Version 5)
Quarter: 2016Q1

REPORT INFORMATION
  Report Type: Spontaneous
  Country: GB (occurrence: GB)
  Receive Date: 20141031
  Receipt Date: 20160323
  Transmission Date: 20160525
  Serious: Yes (Hospitalization)
  Sender: FDA-Public Use
  Company Number: GB-ACTAVIS-2014-23105

PATIENT
  Age: 1 Day
  Sex: Female
  Weight: 2.55 kg

DRUGS (7)
  1. COCODAMOL [Suspect]
     Active Substance: ACETAMINOPHEN\CODEINE PHOSPHATE
     Indication: BACK DISORDER
     Dosage: UNK (STAGGERED PARACETAMOL OVERDOSE, UN INTENTIONAL, OVER WEEKS AND DAYS PRIOR TO DELIVERY)
     Route: 064
  2. ENOXAPARIN [Concomitant]
     Active Substance: ENOXAPARIN
     Indication: PRODUCT USED FOR UNKNOWN INDICATION
     Dosage: UNK
     Route: 064
  3. FLUOXETINE [Concomitant]
     Active Substance: FLUOXETINE HYDROCHLORIDE
     Indication: PRODUCT USED FOR UNKNOWN INDICATION
     Dosage: UNK
     Route: 064
  4. PERFALGAN [Suspect]
     Active Substance: ACETAMINOPHEN
     Indication: BACK DISORDER
  5. METRONIDAZOLE. [Concomitant]
     Active Substance: METRONIDAZOLE
     Indication: PYELONEPHRITIS
     Dosage: UNK
     Route: 064
  6. CEFRADINE [Concomitant]
     Active Substance: CEPHRADINE
     Indication: PYELONEPHRITIS
     Dosage: UNK
     Route: 064
  7. PERFALGAN [Suspect]
     Active Substance: ACETAMINOPHEN
     Indication: PELVIC PAIN
     Dosage: UNK (STAGGERED PARACETAMOL OVERDOSE, UN INTENTIONAL, OVER WEEKS AND DAYS PRIOR TO DELIVERY)
     Route: 064

REACTIONS (13)
  - Respiratory distress [Recovered/Resolved]
  - Foetal exposure during pregnancy [Unknown]
  - Developmental delay [Not Recovered/Not Resolved]
  - Drug withdrawal syndrome neonatal [Recovered/Resolved]
  - Abasia [Unknown]
  - Aphasia [Unknown]
  - Foetal arrhythmia [Recovered/Resolved]
  - Drug dependence [Unknown]
  - Jaundice neonatal [Recovered/Resolved]
  - Foetal monitoring abnormal [Unknown]
  - Premature baby [Unknown]
  - Liver function test abnormal [Recovered/Resolved]
  - Tremor [Unknown]
